FAERS Safety Report 4368969-1 (Version None)
Quarter: 2004Q2

REPORT INFORMATION
  Report Type: 
  Country: None (occurrence: None)
  Receive Date: 20040525
  Receipt Date: 20040512
  Transmission Date: 20050107
  Serious: Yes (Hospitalization, Other)
  Sender: FDA-Public Use
  Company Number: ES-JNJFOC-20040404954

PATIENT
  Age: 50 Year
  Sex: Male

DRUGS (4)
  1. REMICADE [Suspect]
     Indication: RHEUMATOID ARTHRITIS
     Dosage: 3 MG/KG, INTRAVENOUS
     Route: 042
     Dates: start: 20010401, end: 20040201
  2. METHOTREXATE [Concomitant]
  3. HYDROCHLOROQUINE (HYDROCHLOROQUINE) [Concomitant]
  4. PREDNISONE [Concomitant]

REACTIONS (10)
  - ALANINE AMINOTRANSFERASE INCREASED [None]
  - ASPARTATE AMINOTRANSFERASE INCREASED [None]
  - BILE DUCT CANCER [None]
  - BILE DUCT OBSTRUCTION [None]
  - BLOOD ALKALINE PHOSPHATASE INCREASED [None]
  - CHOLANGITIS [None]
  - GAMMA-GLUTAMYLTRANSFERASE INCREASED [None]
  - JAUNDICE [None]
  - PANCREATIC CARCINOMA [None]
  - PANCREATITIS ACUTE [None]
